FAERS Safety Report 20079966 (Version 1)
Quarter: 2021Q4

REPORT INFORMATION
  Report Type: Spontaneous
  Country: US (occurrence: None)
  Receive Date: 20211116
  Receipt Date: 20211116
  Transmission Date: 20220303
  Serious: Yes (Hospitalization)
  Sender: FDA-Public Use
  Company Number: None

PATIENT
  Age: 80 Year
  Sex: Female
  Weight: 71.21 kg

DRUGS (14)
  1. DEXAMETHASONE [Suspect]
     Active Substance: DEXAMETHASONE
     Indication: Plasma cell myeloma
     Dosage: FREQUENCY : WEEKLY;?
     Route: 048
     Dates: start: 20210528
  2. ACETAMINOPHEN [Concomitant]
     Active Substance: ACETAMINOPHEN
  3. AMMONIUM [Concomitant]
  4. LACTATE [Concomitant]
  5. CHOLESTYRAINE [Concomitant]
  6. DICLOFENAC [Concomitant]
  7. FERROUS SULFATE [Concomitant]
  8. GABAPENTI [Concomitant]
  9. LOPERAMIDE [Concomitant]
  10. LORATADINE [Concomitant]
  11. MELOXICAM [Concomitant]
  12. NINLARO [Concomitant]
  13. NUCYNTA [Concomitant]
  14. REVLIMID [Concomitant]

REACTIONS (1)
  - Physiotherapy [None]
